FAERS Safety Report 22083824 (Version 2)
Quarter: 2023Q1

REPORT INFORMATION
  Report Type: Spontaneous
  Country: IN (occurrence: IN)
  Receive Date: 20230310
  Receipt Date: 20230321
  Transmission Date: 20230418
  Serious: Yes (Death, Other)
  Sender: FDA-Public Use
  Company Number: IN-PFIZER INC-2021185470

PATIENT
  Age: 66 Year
  Sex: Female

DRUGS (4)
  1. PALBOCICLIB [Suspect]
     Active Substance: PALBOCICLIB
     Indication: Breast cancer metastatic
     Dosage: 125 MG, 1X/DAY
     Route: 048
     Dates: start: 20200630
  2. PALBOCICLIB [Suspect]
     Active Substance: PALBOCICLIB
     Indication: Breast cancer stage IV
     Dosage: 125 MG, 1X/DAY
     Route: 048
     Dates: start: 20210603
  3. FULVESTRANT [Concomitant]
     Active Substance: FULVESTRANT
     Indication: Breast cancer stage IV
     Dosage: 2.5 MG, X3 MONTHS
  4. FULVESTRANT [Concomitant]
     Active Substance: FULVESTRANT
     Dosage: 250 MG, INJ. FULVESTRANT 250MG IM FOR EACH BUTTOCK X 3 MONTHS
     Route: 030

REACTIONS (7)
  - Death [Fatal]
  - Off label use [Unknown]
  - Product administration interrupted [Unknown]
  - Nausea [Recovering/Resolving]
  - Diarrhoea [Recovering/Resolving]
  - Skin disorder [Unknown]
  - Ageusia [Unknown]

NARRATIVE: CASE EVENT DATE: 20230223
